FAERS Safety Report 8570183-0 (Version None)
Quarter: 2012Q3

REPORT INFORMATION
  Report Type: 
  Country: None (occurrence: None)
  Receive Date: 20120803
  Receipt Date: 20100408
  Transmission Date: 20120928
  Serious: Yes (Hospitalization, Other)
  Sender: FDA-Public Use
  Company Number: GB-009507513-2010SP008417

PATIENT

DRUGS (3)
  1. PEGASYS [Suspect]
     Indication: HEPATITIS C
     Dosage: UNK UNK, QW
     Route: 058
     Dates: start: 20090504
  2. RIBAVIRIN [Suspect]
     Indication: HEPATITIS C
     Dosage: 800 MG, BID
     Route: 048
     Dates: start: 20090504, end: 20100205
  3. PEGASYS [Suspect]
     Dosage: 90 ?G, QW
     Route: 058
     Dates: end: 20100205

REACTIONS (3)
  - RETINAL HAEMORRHAGE [None]
  - BLOOD GLUCOSE INCREASED [None]
  - PLATELET COUNT DECREASED [None]
